FAERS Safety Report 16307290 (Version 1)
Quarter: 2019Q2

REPORT INFORMATION
  Report Type: Report from Study
  Country: BR (occurrence: BR)
  Receive Date: 20190514
  Receipt Date: 20190514
  Transmission Date: 20190711
  Serious: Yes (Other)
  Sender: FDA-Public Use
  Company Number: BR-EMD SERONO-9090323

PATIENT
  Sex: Male
  Weight: 92 kg

DRUGS (3)
  1. IBUPROFEN. [Concomitant]
     Active Substance: IBUPROFEN
     Indication: PRODUCT USED FOR UNKNOWN INDICATION
  2. WELLBUTRIN [Concomitant]
     Active Substance: BUPROPION HYDROCHLORIDE
     Indication: PRODUCT USED FOR UNKNOWN INDICATION
  3. REBIF [Suspect]
     Active Substance: INTERFERON BETA-1A
     Indication: PRODUCT USED FOR UNKNOWN INDICATION

REACTIONS (26)
  - Melanocytic naevus [Unknown]
  - White blood cell count decreased [Unknown]
  - Overweight [Unknown]
  - Stress [Unknown]
  - Tricuspid valve incompetence [Unknown]
  - Ankle fracture [Unknown]
  - Gastrooesophageal reflux disease [Unknown]
  - Presbyopia [Unknown]
  - Spinal osteoarthritis [Unknown]
  - Blood triglycerides increased [Unknown]
  - Seborrhoeic dermatitis [Unknown]
  - Fibroma [Unknown]
  - High density lipoprotein decreased [Unknown]
  - Musculoskeletal disorder [Unknown]
  - Dyslipidaemia [Unknown]
  - Ventricular extrasystoles [Unknown]
  - Hepatic steatosis [Unknown]
  - Posture abnormal [Unknown]
  - Flatulence [Unknown]
  - Leukoderma [Unknown]
  - Hypermetropia [Unknown]
  - Very low density lipoprotein increased [Unknown]
  - Keratomileusis [Unknown]
  - Mitral valve incompetence [Unknown]
  - Metabolic function test abnormal [Unknown]
  - Left ventricular dysfunction [Unknown]

NARRATIVE: CASE EVENT DATE: 2011
